FAERS Safety Report 14760172 (Version 2)
Quarter: 2018Q2

REPORT INFORMATION
  Report Type: Report from Study
  Country: US (occurrence: US)
  Receive Date: 20180413
  Receipt Date: 20180504
  Transmission Date: 20180711
  Serious: Yes (Hospitalization, Other)
  Sender: FDA-Public Use
  Company Number: US-GILEAD-2018-0331922

PATIENT
  Age: 67 Year
  Sex: Female

DRUGS (1)
  1. RANOLAZINE. [Suspect]
     Active Substance: RANOLAZINE
     Indication: ANGINA PECTORIS
     Dosage: 500 MG, BID
     Route: 048

REACTIONS (12)
  - Influenza [Recovering/Resolving]
  - Viral infection [Recovering/Resolving]
  - Renal impairment [Recovering/Resolving]
  - Diarrhoea [Recovering/Resolving]
  - Chest discomfort [Not Recovered/Not Resolved]
  - Intentional product use issue [Recovering/Resolving]
  - Arrhythmia [Unknown]
  - Infection [Recovering/Resolving]
  - Dehydration [Recovering/Resolving]
  - Diverticulitis [Recovering/Resolving]
  - Electrocardiogram abnormal [Unknown]
  - Product use issue [Not Recovered/Not Resolved]

NARRATIVE: CASE EVENT DATE: 201705
